FAERS Safety Report 6793285-8 (Version None)
Quarter: 2010Q2

REPORT INFORMATION
  Report Type: 
  Country: None (occurrence: None)
  Receive Date: 20100624
  Receipt Date: 20100125
  Transmission Date: 20101027
  Serious: Yes (Other)
  Sender: FDA-Public Use
  Company Number: US-MYLANLABS-2009S1018483

PATIENT
  Age: 65 Year
  Sex: Female

DRUGS (8)
  1. CLOZAPINE [Suspect]
     Indication: SCHIZOPHRENIA, PARANOID TYPE
     Route: 048
     Dates: start: 20090429, end: 20091026
  2. CLOZAPINE [Suspect]
     Route: 048
     Dates: start: 20090101
  3. CLOZAPINE [Suspect]
     Route: 048
     Dates: start: 20090612, end: 20091202
  4. NEURONTIN [Concomitant]
  5. GEODON [Concomitant]
  6. DEPAKOTE [Concomitant]
  7. BENADRYL [Concomitant]
  8. LUNESTA [Concomitant]

REACTIONS (1)
  - GRANULOCYTOPENIA [None]
